FAERS Safety Report 4696745-9 (Version None)
Quarter: 2005Q2

REPORT INFORMATION
  Report Type: 
  Country: None (occurrence: None)
  Receive Date: 20050622
  Receipt Date: 20050614
  Transmission Date: 20051028
  Serious: Yes (Death)
  Sender: FDA-Public Use
  Company Number: 200515632GDDC

PATIENT
  Age: 77 Year
  Sex: Male

DRUGS (22)
  1. FRUMIL [Suspect]
  2. FUROSEMIDE [Suspect]
  3. NOZINAN [Suspect]
  4. COMBIVENT [Suspect]
     Route: 055
  5. SPIRIVA [Suspect]
     Route: 055
  6. ALBUTEROL [Suspect]
     Route: 055
  7. ASPIRIN [Suspect]
  8. ATORVASTATIN CALCIUM [Suspect]
  9. BECLOMETHASONE DIPROPIONATE [Suspect]
     Route: 055
  10. DEXAMETHASONE [Suspect]
  11. GAVISCON [Suspect]
  12. DILTIAZEM [Suspect]
  13. DOSULEPIN [Suspect]
  14. LACTULOSE [Suspect]
     Dosage: DOSE: 3.35 G/5ML
  15. LANSOPRAZOLE [Suspect]
  16. METOCLOPRAMIDE [Suspect]
  17. NITROLINGUAL [Suspect]
  18. OXYCODONE HCL [Suspect]
  19. OXYGEN [Suspect]
     Route: 055
  20. SPIRONOLACTONE [Suspect]
  21. SYMBICORT [Suspect]
     Dosage: DOSE: 200/6 MCG 1-2 PUFFS
     Route: 055
  22. TEMAZEPAM [Suspect]
     Dosage: DOSE: 10 MG, 1-2 NOCTE

REACTIONS (1)
  - MESOTHELIOMA [None]
